FAERS Safety Report 20911342 (Version 1)
Quarter: 2022Q2

REPORT INFORMATION
  Report Type: Spontaneous
  Country: FR (occurrence: FR)
  Receive Date: 20220603
  Receipt Date: 20220603
  Transmission Date: 20220721
  Serious: Yes (Other)
  Sender: FDA-Public Use
  Company Number: None

PATIENT
  Age: 57 Year
  Sex: Female
  Weight: 43 kg

DRUGS (6)
  1. TRASTUZUMAB DERUXTECAN [Suspect]
     Active Substance: TRASTUZUMAB DERUXTECAN
     Indication: Breast neoplasm
     Dosage: 240 MG, ONCE EVERY 3 WK
     Route: 042
     Dates: start: 20210205, end: 20210528
  2. ONDANSETRON [Suspect]
     Active Substance: ONDANSETRON
     Indication: Premedication
     Dosage: 1 DF, ONCE EVERY 3 WK (8 MG)
     Route: 048
     Dates: start: 20210326, end: 20210528
  3. EMEND [Suspect]
     Active Substance: APREPITANT
     Indication: Premedication
     Dosage: 1 DF, ONCE EVERY 3 WK (125 MG)
     Route: 048
     Dates: start: 20210326, end: 20210528
  4. MORPHINE SULFATE [Concomitant]
     Active Substance: MORPHINE SULFATE
     Indication: Product used for unknown indication
     Dosage: 1 DF
     Route: 048
     Dates: start: 2010
  5. ELIQUIS [Concomitant]
     Active Substance: APIXABAN
     Indication: Thrombosis prophylaxis
     Dosage: UNK
     Route: 048
     Dates: start: 201912
  6. SKENAN [Concomitant]
     Active Substance: MORPHINE SULFATE
     Indication: Product used for unknown indication
     Dosage: 20 MG, QD
     Route: 048
     Dates: start: 2010

REACTIONS (2)
  - Ulcerative keratitis [Recovered/Resolved]
  - Keratitis [Recovered/Resolved with Sequelae]

NARRATIVE: CASE EVENT DATE: 20210531
